FAERS Safety Report 24194257 (Version 1)
Quarter: 2024Q3

REPORT INFORMATION
  Report Type: Spontaneous
  Country: US (occurrence: None)
  Receive Date: 20240808
  Receipt Date: 20240808
  Transmission Date: 20241017
  Serious: Yes (Hospitalization)
  Sender: Public
  Company Number: None

PATIENT
  Age: 48 Year
  Sex: Male

DRUGS (2)
  1. SILDENAFIL [Suspect]
     Active Substance: SILDENAFIL
     Dosage: 1 MG AS NEEDED ORAL
     Route: 048
  2. RENVELA PAK [Concomitant]

REACTIONS (4)
  - Suicidal ideation [None]
  - Dyspnoea [None]
  - Insomnia [None]
  - Anxiety [None]
